FAERS Safety Report 7978287-8 (Version None)
Quarter: 2011Q4

REPORT INFORMATION
  Report Type: 
  Country: None (occurrence: None)
  Receive Date: 20111214
  Receipt Date: 20111206
  Transmission Date: 20120403
  Serious: Yes (Other)
  Sender: FDA-Public Use
  Company Number: FR-PFIZER INC-2011270089

PATIENT
  Age: 45 Year
  Sex: Male
  Weight: 76 kg

DRUGS (5)
  1. VARENICLINE TARTRATE [Suspect]
     Dosage: 0.5 MG, 2X/DAY
     Route: 048
     Dates: start: 20110329, end: 20110404
  2. VARENICLINE TARTRATE [Suspect]
     Dosage: 1 MG, 2X/DAY
     Route: 048
     Dates: start: 20110405, end: 20110418
  3. LEVOTHYROXINE SODIUM [Concomitant]
     Indication: GOITRE
  4. VARENICLINE TARTRATE [Suspect]
     Indication: SMOKING CESSATION THERAPY
     Dosage: 0.5 MG, 1X/DAY
     Route: 048
     Dates: start: 20110322, end: 20110328
  5. LEVOTHYROXINE SODIUM [Concomitant]
     Indication: HYPOTHYROIDISM
     Dosage: 50 MG, 1X/DAY
     Route: 048
     Dates: start: 20101126

REACTIONS (5)
  - IMPAIRED WORK ABILITY [None]
  - COSTOCHONDRITIS [None]
  - MUSCULOSKELETAL PAIN [None]
  - HYPOKINESIA [None]
  - CHEST PAIN [None]
